FAERS Safety Report 5453889-1 (Version None)
Quarter: 2007Q3

REPORT INFORMATION
  Report Type: 
  Country: None (occurrence: None)
  Receive Date: 20070917
  Receipt Date: 20070911
  Transmission Date: 20080115
  Serious: Yes (Hospitalization)
  Sender: FDA-Public Use
  Company Number: B0487110A

PATIENT
  Age: 38 Year
  Sex: Female

DRUGS (1)
  1. AMOXICILLIN TRIHYDRATE [Suspect]
     Dosage: 750MG PER DAY
     Route: 048
     Dates: start: 20070807, end: 20070812

REACTIONS (1)
  - LIVER DISORDER [None]
